FAERS Safety Report 10203709 (Version 1)
Quarter: 2014Q2

REPORT INFORMATION
  Report Type: Report from Study
  Country: CA (occurrence: CA)
  Receive Date: 20140529
  Receipt Date: 20140529
  Transmission Date: 20141212
  Serious: Yes (Other)
  Sender: FDA-Public Use
  Company Number: CA-JNJFOC-20140515200

PATIENT
  Age: 58 Year
  Sex: Female
  Weight: 71.8 kg

DRUGS (8)
  1. REMICADE [Suspect]
     Indication: CROHN^S DISEASE
     Route: 042
     Dates: start: 20100415
  2. WELLBUTRIN [Concomitant]
     Route: 065
  3. TECTA [Concomitant]
     Route: 065
  4. FOSAVANCE [Concomitant]
     Route: 065
  5. NEURONTIN [Concomitant]
     Route: 065
  6. IMOVANE [Concomitant]
     Route: 065
  7. PLAQUENIL [Concomitant]
     Route: 065
  8. NAPROXEN [Concomitant]
     Route: 065

REACTIONS (4)
  - Systemic lupus erythematosus [Recovering/Resolving]
  - Eye pruritus [Recovering/Resolving]
  - Neoplasm [Recovering/Resolving]
  - Alopecia [Recovering/Resolving]
